FAERS Safety Report 19190392 (Version 1)
Quarter: 2021Q2

REPORT INFORMATION
  Report Type: Spontaneous
  Country: US (occurrence: US)
  Receive Date: 20210428
  Receipt Date: 20210428
  Transmission Date: 20210717
  Serious: Yes (Other)
  Sender: FDA-Public Use
  Company Number: US-LUPIN PHARMACEUTICALS INC.-2021-05462

PATIENT
  Age: 2 Month
  Sex: Female

DRUGS (6)
  1. CALCIUM [Suspect]
     Active Substance: CALCIUM
     Dosage: UNK UNK, QD (EQUIVALENT TO 2000 MG ELEMENTAL CALCIUM DAILY)
     Route: 065
  2. CALCITRIOL. [Suspect]
     Active Substance: CALCITRIOL
     Indication: HYPOCALCAEMIA
     Dosage: 0.15 MICROGRAM, QD
     Route: 048
  3. CALCITRIOL. [Suspect]
     Active Substance: CALCITRIOL
     Dosage: 0.5 MICROGRAM, QD
     Route: 048
  4. CALCIUM [Suspect]
     Active Substance: CALCIUM
     Indication: HYPOCALCAEMIA
     Dosage: UNK (VARIOUS DOSES BETWEEN THE AGE OF 1 YEAR AND 9.5 YEARS)
     Route: 048
  5. CALCITRIOL. [Suspect]
     Active Substance: CALCITRIOL
     Dosage: UNK?VARIOUS DOSES BETWEEN THE AGE OF 1 YEAR AND 9.5 YEARS
     Route: 048
  6. CALCIUM [Suspect]
     Active Substance: CALCIUM
     Indication: MINERAL SUPPLEMENTATION
     Dosage: UNK UNK, QD (EQUIVALENT TO 400MG ELEMENTAL CALCIUM DAILY)
     Route: 048

REACTIONS (3)
  - Gastrointestinal disorder [Unknown]
  - Hypercalciuria [Recovered/Resolved]
  - Nephrocalcinosis [Not Recovered/Not Resolved]
